FAERS Safety Report 6335128-2 (Version None)
Quarter: 2009Q3

REPORT INFORMATION
  Report Type: 
  Country: None (occurrence: None)
  Receive Date: 20090826
  Receipt Date: 20090811
  Transmission Date: 20100115
  Serious: Yes (Hospitalization)
  Sender: FDA-Public Use
  Company Number: MIN-00532

PATIENT
  Age: 74 Year
  Sex: Female

DRUGS (1)
  1. MINOCIN [Suspect]
     Indication: PEMPHIGOID
     Dosage: 100 MG TWICE DAILY

REACTIONS (2)
  - SYNCOPE [None]
  - VERTIGO [None]
